FAERS Safety Report 15822116 (Version 1)
Quarter: 2019Q1

REPORT INFORMATION
  Report Type: Spontaneous
  Country: US (occurrence: US)
  Receive Date: 20190114
  Receipt Date: 20190114
  Transmission Date: 20190417
  Serious: No
  Sender: FDA-Public Use
  Company Number: None

PATIENT
  Age: 56 Year
  Sex: Male
  Weight: 124.2 kg

DRUGS (1)
  1. GLUCAGON. [Suspect]
     Active Substance: GLUCAGON
     Indication: OESOPHAGEAL DISORDER
     Route: 042
     Dates: start: 20190113, end: 20190113

REACTIONS (6)
  - Vomiting [None]
  - Heart rate increased [None]
  - Peripheral swelling [None]
  - Blood pressure increased [None]
  - Nausea [None]
  - Flushing [None]

NARRATIVE: CASE EVENT DATE: 20190113
